FAERS Safety Report 14609701 (Version 2)
Quarter: 2018Q1

REPORT INFORMATION
  Report Type: Spontaneous
  Country: FR (occurrence: FR)
  Receive Date: 20180307
  Receipt Date: 20180310
  Transmission Date: 20180509
  Serious: Yes (Other)
  Sender: FDA-Public Use
  Company Number: FR-ABBVIE-18S-056-2276210-00

PATIENT
  Age: 28 Year
  Sex: Male

DRUGS (3)
  1. MICROPAKINE [Suspect]
     Active Substance: VALPROIC ACID
     Indication: WRONG PATIENT RECEIVED MEDICATION
     Route: 048
     Dates: start: 20171108
  2. VERATRAN [Suspect]
     Active Substance: CLOTIAZEPAM
     Indication: WRONG PATIENT RECEIVED MEDICATION
     Route: 048
     Dates: start: 20171108
  3. RIVOTRIL [Suspect]
     Active Substance: CLONAZEPAM
     Indication: WRONG PATIENT RECEIVED MEDICATION
     Route: 048
     Dates: start: 20171108

REACTIONS (3)
  - Medication error [Unknown]
  - Wrong patient received medication [Unknown]
  - Somnolence [Recovered/Resolved]

NARRATIVE: CASE EVENT DATE: 20171108
